FAERS Safety Report 22333959 (Version 1)
Quarter: 2023Q2

REPORT INFORMATION
  Report Type: Spontaneous
  Country: US (occurrence: US)
  Receive Date: 20230517
  Receipt Date: 20230517
  Transmission Date: 20230721
  Serious: No
  Sender: FDA-Public Use
  Company Number: US-SA-SAC20230511000471

PATIENT

DRUGS (2)
  1. LARONIDASE [Suspect]
     Active Substance: LARONIDASE
     Indication: Mucopolysaccharidosis I
     Dosage: 43.5(UNITS NOT PROVIDED),QW
     Route: 042
     Dates: start: 20220210, end: 2023
  2. LARONIDASE [Suspect]
     Active Substance: LARONIDASE
     Dosage: 43.5(UNITS NOT PROVIDED),QW
     Route: 042
     Dates: start: 20230504

REACTIONS (1)
  - Malaise [Recovered/Resolved]

NARRATIVE: CASE EVENT DATE: 20230427
